FAERS Safety Report 5215270-X (Version None)
Quarter: 2006Q4

REPORT INFORMATION
  Report Type: 
  Country: None (occurrence: None)
  Receive Date: 20061122
  Receipt Date: 20060306
  Transmission Date: 20070319
  Serious: Yes (Other)
  Sender: FDA-Public Use
  Company Number: HQWYE211308MAR06

PATIENT
  Age: 62 Year
  Sex: Female
  Weight: 52.21 kg

DRUGS (2)
  1. PREMARIN [Suspect]
     Indication: HORMONE REPLACEMENT THERAPY
     Dosage: VAGINAL
     Route: 067
     Dates: start: 20060220, end: 20060227
  2. SYNTHROID [Concomitant]

REACTIONS (3)
  - GENITAL PRURITUS FEMALE [None]
  - VAGINAL BURNING SENSATION [None]
  - VAGINAL INFLAMMATION [None]
